FAERS Safety Report 11794290 (Version 1)
Quarter: 2015Q4

REPORT INFORMATION
  Report Type: Spontaneous
  Country: US (occurrence: US)
  Receive Date: 20151202
  Receipt Date: 20151202
  Transmission Date: 20160305
  Serious: Yes (Hospitalization)
  Sender: FDA-Public Use
  Company Number: US-SHIRE-US201515612

PATIENT
  Age: 12 Year
  Sex: Male

DRUGS (1)
  1. VYVANSE [Suspect]
     Active Substance: LISDEXAMFETAMINE DIMESYLATE
     Indication: AFFECTIVE DISORDER
     Dosage: 20 MG, 1X/DAY:QD (AM)
     Route: 048
     Dates: start: 20130123

REACTIONS (2)
  - Aggression [Unknown]
  - Product use issue [Unknown]

NARRATIVE: CASE EVENT DATE: 20130123
